FAERS Safety Report 19120612 (Version 1)
Quarter: 2021Q2

REPORT INFORMATION
  Report Type: Spontaneous
  Country: US (occurrence: US)
  Receive Date: 20210410
  Receipt Date: 20210410
  Transmission Date: 20210717
  Serious: Yes (Life-Threatening, Disabling)
  Sender: FDA-Public Use
  Company Number: None

PATIENT
  Age: 47 Year
  Sex: Female
  Weight: 90 kg

DRUGS (15)
  1. CHROMIUM PICCOLINATE [Concomitant]
  2. NP THYROID [Suspect]
     Active Substance: LEVOTHYROXINE\LIOTHYRONINE
     Indication: HYPOTHYROIDISM
  3. NP THYROID [Suspect]
     Active Substance: LEVOTHYROXINE\LIOTHYRONINE
     Indication: HYPOTHYROIDISM
  4. LIBRE CONTINUOUS GLUCOSE MONITOR [Concomitant]
  5. ASPIRIN. [Concomitant]
     Active Substance: ASPIRIN
  6. FISH OIL [Concomitant]
     Active Substance: FISH OIL
  7. THIAMINE. [Concomitant]
     Active Substance: THIAMINE
  8. CYTOMEL [Concomitant]
     Active Substance: LIOTHYRONINE SODIUM
  9. VITAMIN D3 [Concomitant]
     Active Substance: CHOLECALCIFEROL
  10. PROBIOTICS [Concomitant]
     Active Substance: PROBIOTICS NOS
  11. TIROSINT [Concomitant]
     Active Substance: LEVOTHYROXINE SODIUM
  12. MULTIVITAMIN [Concomitant]
     Active Substance: VITAMINS
  13. NP THYROID [Suspect]
     Active Substance: LEVOTHYROXINE\LIOTHYRONINE
     Indication: HYPOTHYROIDISM
     Route: 048
  14. NP THYROID [Suspect]
     Active Substance: LEVOTHYROXINE\LIOTHYRONINE
     Indication: HYPOTHYROIDISM
  15. VITAMIN B [Concomitant]
     Active Substance: VITAMIN B

REACTIONS (12)
  - Heart rate increased [None]
  - Weight increased [None]
  - Alopecia [None]
  - Suspected product quality issue [None]
  - Asthenia [None]
  - Insomnia [None]
  - Fatigue [None]
  - Blood pressure increased [None]
  - Irritability [None]
  - Constipation [None]
  - Palpitations [None]
  - Insulin resistance [None]

NARRATIVE: CASE EVENT DATE: 20200101
